FAERS Safety Report 16911124 (Version 1)
Quarter: 2019Q4

REPORT INFORMATION
  Report Type: Spontaneous
  Country: US (occurrence: US)
  Receive Date: 20191012
  Receipt Date: 20191012
  Transmission Date: 20200122
  Serious: No
  Sender: FDA-Public Use
  Company Number: US-B.I. PHARMACEUTICALS,INC./RIDGEFIELD-2019-US-107164

PATIENT
  Sex: Female

DRUGS (2)
  1. GILOTRIF [Suspect]
     Active Substance: AFATINIB
     Dosage: 30MG
     Route: 065
     Dates: start: 20191002
  2. GILOTRIF [Suspect]
     Active Substance: AFATINIB
     Indication: LUNG CANCER METASTATIC
     Dosage: 40MG
     Route: 065
     Dates: start: 201909, end: 201909

REACTIONS (3)
  - Diarrhoea [Unknown]
  - Hypophagia [Unknown]
  - Rash [Unknown]

NARRATIVE: CASE EVENT DATE: 2019
